FAERS Safety Report 19568058 (Version 1)
Quarter: 2021Q3

REPORT INFORMATION
  Report Type: Spontaneous
  Country: US (occurrence: US)
  Receive Date: 20210716
  Receipt Date: 20210716
  Transmission Date: 20211014
  Serious: No
  Sender: FDA-Public Use
  Company Number: US-SA-2021SA232689

PATIENT

DRUGS (1)
  1. SELSUN [Suspect]
     Active Substance: SELENIUM SULFIDE
     Route: 065

REACTIONS (1)
  - Seborrhoea [Unknown]
